FAERS Safety Report 12891141 (Version 2)
Quarter: 2016Q4

REPORT INFORMATION
  Report Type: Spontaneous
  Country: BG (occurrence: BG)
  Receive Date: 20161027
  Receipt Date: 20161201
  Transmission Date: 20170207
  Serious: Yes (Hospitalization)
  Sender: FDA-Public Use
  Company Number: BG-ASTRAZENECA-2016SF10494

PATIENT
  Age: 66 Year
  Sex: Female

DRUGS (9)
  1. ACETYLSALICYLIC ACID [Concomitant]
     Active Substance: ASPIRIN
     Dosage: 100.0MG UNKNOWN
  2. AMLODIPINE [Concomitant]
     Active Substance: AMLODIPINE BESYLATE
  3. INSULIN [Concomitant]
     Active Substance: INSULIN NOS
  4. VALSARTAN/HYDROCHLOROTHIAZIDE [Concomitant]
     Active Substance: HYDROCHLOROTHIAZIDE\VALSARTAN
     Dosage: 160/12.5 MG
  5. ACETYLSALICYLIC ACID [Concomitant]
     Active Substance: ASPIRIN
  6. BRILIQUE [Suspect]
     Active Substance: TICAGRELOR
     Route: 048
  7. TRIMETAZIDINE [Concomitant]
     Active Substance: TRIMETAZIDINE
  8. ROSUVASTATIN. [Concomitant]
     Active Substance: ROSUVASTATIN
     Dosage: 20.0MG UNKNOWN
  9. BISOPROLOL [Concomitant]
     Active Substance: BISOPROLOL
     Dosage: 5.0MG UNKNOWN

REACTIONS (2)
  - Pulmonary fibrosis [Unknown]
  - Petechiae [Recovered/Resolved]

NARRATIVE: CASE EVENT DATE: 2015
